FAERS Safety Report 5249830-7 (Version None)
Quarter: 2007Q1

REPORT INFORMATION
  Report Type: 
  Country: None (occurrence: None)
  Receive Date: 20070228
  Receipt Date: 20070125
  Transmission Date: 20070707
  Serious: Yes (Hospitalization)
  Sender: FDA-Public Use
  Company Number: HQWYE862129JAN07

PATIENT
  Age: 34 Year
  Sex: Female

DRUGS (10)
  1. ENBREL [Suspect]
     Indication: RHEUMATOID ARTHRITIS
     Route: 058
     Dates: start: 20070110, end: 20070110
  2. NAUZELIN [Suspect]
     Indication: DRUG USE FOR UNKNOWN INDICATION
     Dosage: UNKNOWN
     Route: 048
  3. PREDNISOLONE [Concomitant]
     Dosage: UNKNOWN
     Route: 048
  4. GASTER [Concomitant]
     Dosage: UNKNOWN
     Route: 048
  5. CINAL [Concomitant]
     Dosage: UNKNOWN
     Route: 048
  6. MYONAL [Concomitant]
     Dosage: UNKNOWN
     Route: 048
  7. PARIET [Concomitant]
     Dosage: UNKNOWN
     Route: 048
  8. ISONIAZID [Concomitant]
     Dosage: UNKNOWN
     Route: 048
  9. IMURAN [Concomitant]
     Dosage: UNKNOWN
     Route: 048
  10. FLUCAM [Concomitant]
     Dosage: UNKNOWN
     Route: 048

REACTIONS (1)
  - PARKINSONISM [None]
